FAERS Safety Report 7134620-0 (Version None)
Quarter: 2010Q4

REPORT INFORMATION
  Report Type: 
  Country: None (occurrence: None)
  Receive Date: 20101130
  Receipt Date: 20101130
  Transmission Date: 20110411
  Serious: Yes (Hospitalization)
  Sender: FDA-Public Use
  Company Number: None

PATIENT
  Age: 35 Year
  Sex: Male
  Weight: 94.8 kg

DRUGS (1)
  1. CLINDAMYCIN [Suspect]
     Indication: ANIMAL BITE
     Dosage: 300 MG QID PO
     Route: 048
     Dates: start: 20100404, end: 20100413

REACTIONS (1)
  - RASH [None]
